FAERS Safety Report 26081554 (Version 1)
Quarter: 2025Q4

REPORT INFORMATION
  Report Type: Spontaneous
  Country: IN (occurrence: IN)
  Receive Date: 20251124
  Receipt Date: 20251124
  Transmission Date: 20260117
  Serious: Yes (Hospitalization)
  Sender: CIPLA
  Company Number: IN-MLMSERVICE-20251105-PI702460-00052-1

PATIENT

DRUGS (7)
  1. AMOXICILLIN\CLAVULANIC ACID [Suspect]
     Active Substance: AMOXICILLIN\CLAVULANIC ACID
     Indication: Furuncle
     Dosage: 625 MILLIGRAM, BID (EVERY 12 HOURS)
     Route: 048
  2. METFORMIN [Concomitant]
     Active Substance: METFORMIN HYDROCHLORIDE
     Indication: Diabetes mellitus inadequate control
     Dosage: 500 MILLIGRAM; UNK
     Route: 048
  3. TELMISARTAN [Concomitant]
     Active Substance: TELMISARTAN
     Indication: Hypertension
     Dosage: 40 MILLIGRAM; UNK
     Route: 048
  4. AMLODIPINE [Concomitant]
     Active Substance: AMLODIPINE BESYLATE
     Indication: Hypertension
     Dosage: 5 MILLIGRAM, UNK
     Route: 048
  5. CILNIDIPINE [Concomitant]
     Active Substance: CILNIDIPINE
     Indication: Hypertension
     Dosage: 10 MILLIGRAM; UNK
     Route: 048
  6. ASPIRIN [Concomitant]
     Active Substance: ASPIRIN
     Indication: Antiplatelet therapy
     Dosage: 75 MILLIGRAM; UNK
     Route: 065
  7. CLOPIDOGREL [Concomitant]
     Active Substance: CLOPIDOGREL BISULFATE
     Indication: Antiplatelet therapy
     Dosage: 75 MILLIGRAM; UNK
     Route: 065

REACTIONS (1)
  - Symmetrical drug-related intertriginous and flexural exanthema [Recovering/Resolving]
